FAERS Safety Report 5868947-7 (Version None)
Quarter: 2008Q3

REPORT INFORMATION
  Report Type: 
  Country: None (occurrence: None)
  Receive Date: 20080902
  Receipt Date: 20080902
  Transmission Date: 20090109
  Serious: Yes (Congenital Anomaly)
  Sender: FDA-Public Use
  Company Number: None

PATIENT
  Age: 45 Year
  Sex: Female
  Weight: 103.4201 kg

DRUGS (2)
  1. CYMBALTA [Suspect]
     Indication: PAIN
     Dosage: 1 PER DAY PO
     Route: 048
     Dates: start: 20080201, end: 20080815
  2. NEURONTIN [Suspect]
     Dosage: 2 PER DAY PO
     Route: 048
     Dates: start: 20080201, end: 20080701

REACTIONS (12)
  - BEDRIDDEN [None]
  - CONDITION AGGRAVATED [None]
  - DIZZINESS [None]
  - DRUG WITHDRAWAL SYNDROME [None]
  - ECONOMIC PROBLEM [None]
  - IMPAIRED WORK ABILITY [None]
  - MENTAL DISORDER [None]
  - NAUSEA [None]
  - PARAESTHESIA [None]
  - TREMOR [None]
  - UNEVALUABLE EVENT [None]
  - VERTIGO [None]
